FAERS Safety Report 14019616 (Version 1)
Quarter: 2017Q3

REPORT INFORMATION
  Report Type: Spontaneous
  Country: JP (occurrence: JP)
  Receive Date: 20170928
  Receipt Date: 20170928
  Transmission Date: 20171128
  Serious: Yes (Death, Other)
  Sender: FDA-Public Use
  Company Number: JP-RECORDATI RARE DISEASES-JP-R13005-17-00218

PATIENT
  Sex: Female
  Weight: .59 kg

DRUGS (1)
  1. INDOMETHACIN. [Suspect]
     Active Substance: INDOMETHACIN
     Indication: PATENT DUCTUS ARTERIOSUS
     Route: 065

REACTIONS (6)
  - Bilirubin conjugated increased [Fatal]
  - Drug ineffective [Unknown]
  - Bronchopulmonary dysplasia [Fatal]
  - Pneumonia cytomegaloviral [Fatal]
  - Condition aggravated [Fatal]
  - Platelet count decreased [Fatal]
